FAERS Safety Report 5258230-5 (Version None)
Quarter: 2007Q1

REPORT INFORMATION
  Report Type: 
  Country: None (occurrence: None)
  Receive Date: 20070302
  Receipt Date: 20070219
  Transmission Date: 20070707
  Serious: No
  Sender: FDA-Public Use
  Company Number: 2007-154753-NL

PATIENT
  Age: 48 Year
  Sex: 0

DRUGS (2)
  1. MIRTAZAPINE [Suspect]
     Dosage: DF
  2. PHENYTOIN SODIUM [Suspect]
     Indication: EPILEPSY
     Dosage: DF

REACTIONS (2)
  - DRUG INTERACTION [None]
  - EPILEPSY [None]
